FAERS Safety Report 15588457 (Version 4)
Quarter: 2018Q4

REPORT INFORMATION
  Report Type: Report from Study
  Country: None (occurrence: ES)
  Receive Date: 20181105
  Receipt Date: 20181122
  Transmission Date: 20190205
  Serious: Yes (Hospitalization, Other)
  Sender: FDA-Public Use
  Company Number: ES-ABBVIE-18S-144-2512097-00

PATIENT
  Age: 82 Year
  Sex: Male
  Weight: 64 kg

DRUGS (3)
  1. DUODOPA [Suspect]
     Active Substance: CARBIDOPA\LEVODOPA
     Dosage: MD: 0ML; CD: 5.5; ED: 2.8
     Route: 050
     Dates: start: 2018
  2. DUODOPA [Suspect]
     Active Substance: CARBIDOPA\LEVODOPA
     Indication: PARKINSON^S DISEASE
     Dosage: CD: 6.3 ML/H
     Route: 050
     Dates: start: 20111106, end: 20181022
  3. DUODOPA [Suspect]
     Active Substance: CARBIDOPA\LEVODOPA
     Dosage: CD: LOWER THAN 6 ML/H
     Route: 050
     Dates: start: 20181022, end: 2018

REACTIONS (12)
  - Cognitive disorder [Not Recovered/Not Resolved]
  - Urinary retention [Unknown]
  - On and off phenomenon [Recovering/Resolving]
  - Decreased activity [Unknown]
  - Stupor [Not Recovered/Not Resolved]
  - Central nervous system lesion [Unknown]
  - Hypersexuality [Not Recovered/Not Resolved]
  - Delirium [Unknown]
  - Aggression [Not Recovered/Not Resolved]
  - Stoma site erythema [Recovered/Resolved]
  - Hallucination [Not Recovered/Not Resolved]
  - Urinary tract infection [Unknown]

NARRATIVE: CASE EVENT DATE: 2018
